FAERS Safety Report 6259962-2 (Version None)
Quarter: 2009Q3

REPORT INFORMATION
  Report Type: 
  Country: None (occurrence: None)
  Receive Date: 20090706
  Receipt Date: 20090706
  Transmission Date: 20100115
  Serious: Yes (Hospitalization)
  Sender: FDA-Public Use
  Company Number: None

PATIENT
  Age: 16 Year
  Sex: Male
  Weight: 69.6 kg

DRUGS (2)
  1. DORYX [Suspect]
     Indication: ACNE
     Dosage: 100 MG BID 047
     Dates: start: 20080923
  2. DORYX [Suspect]
     Indication: ACNE
     Dosage: 100 MG BID 047
     Dates: start: 20090226

REACTIONS (3)
  - HEPATIC FIBROSIS [None]
  - HEPATIC NECROSIS [None]
  - HEPATITIS ACUTE [None]
